FAERS Safety Report 5902594-3 (Version None)
Quarter: 2008Q3

REPORT INFORMATION
  Report Type: 
  Country: None (occurrence: None)
  Receive Date: 20080924
  Receipt Date: 20080909
  Transmission Date: 20090109
  Serious: Yes (Hospitalization)
  Sender: FDA-Public Use
  Company Number: DE-1167154

PATIENT
  Age: 65 Year
  Sex: Female

DRUGS (3)
  1. TRAVATAN [Suspect]
     Indication: INTRAOCULAR PRESSURE INCREASED
     Dosage: OPHTHALMIC
     Route: 047
     Dates: start: 20080101, end: 20080903
  2. LEVOTHYROXINE SODIUM [Concomitant]
  3. ESTRADERM [Concomitant]

REACTIONS (7)
  - DIZZINESS [None]
  - DYSPEPSIA [None]
  - GROWTH OF EYELASHES [None]
  - HAIR GROWTH ABNORMAL [None]
  - NAUSEA [None]
  - SKIN BURNING SENSATION [None]
  - SKIN HYPERPIGMENTATION [None]
